FAERS Safety Report 16164313 (Version 2)
Quarter: 2023Q2

REPORT INFORMATION
  Report Type: Spontaneous
  Country: US (occurrence: US)
  Receive Date: 20190405
  Receipt Date: 20230601
  Transmission Date: 20230722
  Serious: No
  Sender: FDA-Public Use
  Company Number: US-JNJFOC-20190336490

PATIENT
  Sex: Male

DRUGS (5)
  1. RISPERDAL [Suspect]
     Active Substance: RISPERIDONE
     Indication: Product used for unknown indication
     Route: 048
     Dates: start: 20090406, end: 20110717
  2. RISPERDAL M-TAB [Suspect]
     Active Substance: RISPERIDONE
     Indication: Aggression
     Route: 048
  3. RISPERDAL M-TAB [Suspect]
     Active Substance: RISPERIDONE
     Dosage: TAKING 0.5 MG TABLETS 3 TIMES DAILY (HALF IN THE MORNING, AT AFTERNOON AND AT NIGHT DAILY)
     Route: 048
     Dates: start: 20090505, end: 20100920
  4. RISPERDAL M-TAB [Suspect]
     Active Substance: RISPERIDONE
     Dosage: TAKING 0.5 MG TABLETS 4 TIMES DAILY (HALF IN THE MORNING, AT AFTERNOON, AT 3 PM AND AT NIGHT DAILY)
     Route: 048
     Dates: start: 20101108, end: 20110131
  5. RISPERIDONE [Suspect]
     Active Substance: RISPERIDONE
     Indication: Product used for unknown indication
     Route: 048

REACTIONS (3)
  - Gynaecomastia [Unknown]
  - Emotional disorder [Unknown]
  - Off label use [Unknown]

NARRATIVE: CASE EVENT DATE: 20090101
